FAERS Safety Report 9098987 (Version 1)
Quarter: 2013Q1

REPORT INFORMATION
  Report Type: Spontaneous
  Country: CH (occurrence: CH)
  Receive Date: 20130214
  Receipt Date: 20130214
  Transmission Date: 20140127
  Serious: Yes (Hospitalization)
  Sender: FDA-Public Use
  Company Number: PHHY2013CH013076

PATIENT
  Age: 78 Year
  Sex: Male
  Weight: 58.1 kg

DRUGS (13)
  1. RIFAMPICIN [Suspect]
     Dosage: 300 MG, UNK
     Route: 042
     Dates: start: 20121027, end: 20121027
  2. VANCOMYCIN [Suspect]
     Dosage: 1 G, UNK
     Route: 042
     Dates: start: 20121027, end: 20121113
  3. CUBICIN [Suspect]
     Dosage: 350 MG, UNK
     Route: 042
     Dates: start: 20121114, end: 20121122
  4. GARAMICIN [Suspect]
     Dosage: 60 MG, BID
     Route: 042
     Dates: start: 20121027, end: 20121029
  5. MARCOUMAR [Concomitant]
     Dosage: 3 MG, QD
     Route: 048
  6. BELOC [Concomitant]
     Dosage: 25 MG, QD
  7. TOREM [Concomitant]
     Dosage: 15 MG, QD
     Route: 048
  8. ZOLPIDEM [Concomitant]
     Dosage: 5 MG, QD
     Route: 048
  9. PANTOZOL [Concomitant]
     Dosage: 40 MG, QD
     Route: 048
  10. ACIDUM FOLICUM [Concomitant]
     Dosage: 5 MG, QD
  11. PRADIF [Concomitant]
     Dosage: 400 MG, UNK
     Route: 048
  12. METFORMIN [Concomitant]
     Dosage: 500 MG, BID
     Route: 048
  13. ENATEC [Concomitant]
     Dosage: 2.5 MG, BID
     Route: 048

REACTIONS (8)
  - Henoch-Schonlein purpura [Recovered/Resolved]
  - Purpura [Recovered/Resolved]
  - Leukocytoclastic vasculitis [Recovered/Resolved]
  - Hepatitis [Recovered/Resolved]
  - Renal failure acute [Recovered/Resolved]
  - Renal impairment [Recovered/Resolved]
  - Proteinuria [Recovered/Resolved]
  - Haematuria [Recovered/Resolved]
